FAERS Safety Report 15757630 (Version 4)
Quarter: 2019Q1

REPORT INFORMATION
  Report Type: Report from Study
  Country: None (occurrence: ES)
  Receive Date: 20181225
  Receipt Date: 20190306
  Transmission Date: 20190417
  Serious: Yes (Other)
  Sender: FDA-Public Use
  Company Number: ES-ABBVIE-18S-144-2602675-00

PATIENT
  Age: 64 Year
  Sex: Male
  Weight: 55.8 kg

DRUGS (10)
  1. ATROPINE DROPS [Concomitant]
     Indication: PRODUCT USED FOR UNKNOWN INDICATION
  2. DUODOPA [Suspect]
     Active Substance: CARBIDOPA\LEVODOPA
     Indication: PARKINSON^S DISEASE
     Dosage: CD 2.4 ML/HOUR ED 0.5 ML
     Route: 050
     Dates: start: 20181018
  3. CELECOXIB. [Concomitant]
     Active Substance: CELECOXIB
     Indication: PRODUCT USED FOR UNKNOWN INDICATION
  4. OXICODONE [Concomitant]
     Indication: KYPHOSIS
  5. DORZOLAMIDA HIDROCLORURO, TIMOLOL MALEATO [Concomitant]
     Indication: PRODUCT USED FOR UNKNOWN INDICATION
  6. OMEPRAZOL [Concomitant]
     Active Substance: OMEPRAZOLE
     Indication: PRODUCT USED FOR UNKNOWN INDICATION
  7. MIRTAZAPINE 45 [Concomitant]
     Indication: PRODUCT USED FOR UNKNOWN INDICATION
  8. BIMATOPROST. [Concomitant]
     Active Substance: BIMATOPROST
     Indication: PRODUCT USED FOR UNKNOWN INDICATION
  9. GABAPENTINE 300 [Concomitant]
     Indication: PRODUCT USED FOR UNKNOWN INDICATION
  10. VORTIOXETINE. [Concomitant]
     Active Substance: VORTIOXETINE
     Indication: PRODUCT USED FOR UNKNOWN INDICATION

REACTIONS (1)
  - Haemoptysis [Recovered/Resolved]

NARRATIVE: CASE EVENT DATE: 20181221
